FAERS Safety Report 7513415-X (Version None)
Quarter: 2011Q2

REPORT INFORMATION
  Report Type: 
  Country: None (occurrence: None)
  Receive Date: 20110531
  Receipt Date: 20110517
  Transmission Date: 20111010
  Serious: Yes (Hospitalization)
  Sender: FDA-Public Use
  Company Number: US-UCBSA-033084

PATIENT
  Sex: Male

DRUGS (2)
  1. CIMZIA [Suspect]
     Route: 058
     Dates: start: 20090601
  2. CIMZIA [Suspect]
     Indication: CROHN'S DISEASE
     Dosage: INDUCTION DOSE
     Route: 058
     Dates: start: 20090428

REACTIONS (1)
  - HOSPITALISATION [None]
